FAERS Safety Report 23328529 (Version 1)
Quarter: 2023Q4

REPORT INFORMATION
  Report Type: Spontaneous
  Country: IT (occurrence: IT)
  Receive Date: 20231221
  Receipt Date: 20231221
  Transmission Date: 20240110
  Serious: Yes (Life-Threatening, Other)
  Sender: FDA-Public Use
  Company Number: IT-MLMSERVICE-20231123-4683271-1

PATIENT
  Age: 30 Year
  Sex: Male

DRUGS (10)
  1. BENDAMUSTINE [Suspect]
     Active Substance: BENDAMUSTINE
     Indication: Hodgkin^s disease
     Dosage: UNK
     Route: 065
     Dates: start: 202002
  2. DOXORUBICIN [Suspect]
     Active Substance: DOXORUBICIN
     Indication: Hodgkin^s disease lymphocyte depletion type stage III
     Dosage: UNK(THIRD-LINE THERAPY)
     Route: 065
     Dates: start: 202004, end: 2020
  3. GEMCITABINE [Suspect]
     Active Substance: GEMCITABINE
     Indication: Hodgkin^s disease
     Dosage: UNK
     Route: 065
     Dates: start: 202002
  4. VINORELBINE [Suspect]
     Active Substance: VINORELBINE TARTRATE
     Indication: Hodgkin^s disease
     Dosage: UNK
     Route: 065
     Dates: start: 202002
  5. VINORELBINE [Suspect]
     Active Substance: VINORELBINE TARTRATE
     Indication: Off label use
  6. BLEOMYCIN\DACARBAZINE\DOXORUBICIN\VINBLASTINE [Suspect]
     Active Substance: BLEOMYCIN\DACARBAZINE\DOXORUBICIN\VINBLASTINE
     Indication: Hodgkin^s disease
     Dosage: UNK
     Route: 065
     Dates: start: 202004
  7. BRENTUXIMAB VEDOTIN [Suspect]
     Active Substance: BRENTUXIMAB VEDOTIN
     Indication: Hodgkin^s disease lymphocyte depletion type stage III
     Dosage: UNK(THIRD-LINE THERAPY)
     Route: 065
     Dates: start: 2020, end: 2020
  8. BRENTUXIMAB VEDOTIN [Suspect]
     Active Substance: BRENTUXIMAB VEDOTIN
     Indication: Hodgkin^s disease
  9. DACARBAZINE [Suspect]
     Active Substance: DACARBAZINE
     Indication: Hodgkin^s disease lymphocyte depletion type stage III
     Dosage: UNK(THIRD-LINE THERAPY)
     Route: 065
     Dates: start: 202004, end: 2020
  10. VINBLASTINE [Suspect]
     Active Substance: VINBLASTINE
     Indication: Hodgkin^s disease lymphocyte depletion type stage III
     Dosage: UNK(THIRD-LINE THERAPY)
     Route: 065
     Dates: start: 202004, end: 2020

REACTIONS (4)
  - Haematotoxicity [Unknown]
  - Drug ineffective [Unknown]
  - Product use in unapproved indication [Unknown]
  - Off label use [Unknown]

NARRATIVE: CASE EVENT DATE: 20200101
